FAERS Safety Report 9015954 (Version 4)
Quarter: 2013Q3

REPORT INFORMATION
  Report Type: Report from Study
  Country: CA (occurrence: CA)
  Receive Date: 20130116
  Receipt Date: 20130924
  Transmission Date: 20140515
  Serious: Yes (Life-Threatening, Hospitalization)
  Sender: FDA-Public Use
  Company Number: CA-JNJFOC-20130107091

PATIENT
  Age: 67 Year
  Sex: Male
  Weight: 89.81 kg

DRUGS (12)
  1. STELARA [Suspect]
     Indication: PSORIASIS
     Route: 058
     Dates: start: 20121201, end: 201301
  2. GLIPIZIDE [Concomitant]
  3. RAMIPRIL [Concomitant]
     Dosage: FIVE YEARS
     Route: 065
  4. METFORMIN [Concomitant]
     Dosage: FIVE YEARS
     Route: 065
  5. ASA [Concomitant]
     Dosage: FOUR YEARS
     Route: 065
  6. ATORVASTATIN [Concomitant]
     Dosage: FIVE YEARS
     Route: 048
  7. NADOLOL [Concomitant]
  8. VITAMIN B12 [Concomitant]
     Dosage: THREE YEARS
     Route: 065
  9. ALL OTHER THERAPEUTIC PRODUCTS [Concomitant]
  10. FOLIC ACID [Concomitant]
  11. METOPROLOL [Concomitant]
     Dosage: TWO YEARS
     Route: 048
  12. GLICLAZIDE [Concomitant]
     Dosage: FIVE YEARS
     Route: 065

REACTIONS (4)
  - Loss of consciousness [Recovered/Resolved]
  - Hypersensitivity [Unknown]
  - Headache [Recovered/Resolved]
  - Atrioventricular block [Recovered/Resolved]
